FAERS Safety Report 7778565-1 (Version None)
Quarter: 2011Q3

REPORT INFORMATION
  Report Type: 
  Country: None (occurrence: None)
  Receive Date: 20110926
  Receipt Date: 20110914
  Transmission Date: 20111222
  Serious: Yes (Other)
  Sender: FDA-Public Use
  Company Number: US-BAYER-2011-049791

PATIENT
  Age: 37 Year
  Sex: Female
  Weight: 68.027 kg

DRUGS (13)
  1. YASMIN [Suspect]
     Indication: CONTRACEPTION
     Dosage: UNK
     Dates: start: 20060101
  2. WELLBUTRIN [Concomitant]
  3. CLONAZEPAM [Concomitant]
  4. LEXAPRO [Concomitant]
     Indication: ANXIETY
     Dosage: 20 MG, QD
     Route: 048
  5. ZOCOR [Concomitant]
     Indication: BLOOD CHOLESTEROL INCREASED
     Dosage: 20 MG, QD
     Route: 048
  6. CHANTIX [Concomitant]
  7. CITALOPRAM [Concomitant]
  8. FLEXERIL [Concomitant]
  9. LOVASTATIN [Concomitant]
  10. YAZ [Suspect]
     Indication: CONTRACEPTION
     Dosage: UNK
     Dates: end: 20090101
  11. VERAMYST [Concomitant]
  12. CLARITIN [Concomitant]
     Indication: SEASONAL ALLERGY
     Dosage: 10 MG, QD
     Route: 048
  13. LOESTRIN 1.5/30 [Concomitant]

REACTIONS (3)
  - GALLBLADDER DISORDER [None]
  - CHOLECYSTITIS CHRONIC [None]
  - ABDOMINAL PAIN [None]
